FAERS Safety Report 4916089-7 (Version None)
Quarter: 2006Q1

REPORT INFORMATION
  Report Type: 
  Country: None (occurrence: None)
  Receive Date: 20060214
  Receipt Date: 20060203
  Transmission Date: 20060701
  Serious: Yes (Other)
  Sender: FDA-Public Use
  Company Number: US-2005-024067

PATIENT
  Age: 29 Year
  Sex: Female

DRUGS (2)
  1. MIRENA [Suspect]
     Indication: CONTRACEPTION
     Dosage: 20 UG/KG, CONT, INTRA-UTERINE
     Route: 015
     Dates: start: 20041201, end: 20060202
  2. ULTRAM [Concomitant]

REACTIONS (7)
  - ABDOMINAL PAIN LOWER [None]
  - APPENDICECTOMY [None]
  - DEVICE MIGRATION [None]
  - DIZZINESS [None]
  - METRORRHAGIA [None]
  - NAUSEA [None]
  - UTERINE PERFORATION [None]
